FAERS Safety Report 11778243 (Version 15)
Quarter: 2018Q2

REPORT INFORMATION
  Report Type: Report from Study
  Country: US (occurrence: US)
  Receive Date: 20151125
  Receipt Date: 20180420
  Transmission Date: 20180711
  Serious: Yes (Disabling, Other)
  Sender: FDA-Public Use
  Company Number: US-JNJFOC-20151122324

PATIENT
  Age: 82 Year
  Sex: Female

DRUGS (19)
  1. AMIODARONE [Concomitant]
     Active Substance: AMIODARONE
  2. SOTALOL. [Concomitant]
     Active Substance: SOTALOL
  3. CEFALEXIN [Concomitant]
     Active Substance: CEPHALEXIN
  4. MULTAQ [Concomitant]
     Active Substance: DRONEDARONE
  5. HYDROCHLOROTHIAZIDE. [Concomitant]
     Active Substance: HYDROCHLOROTHIAZIDE
  6. AMLODIPINE [Concomitant]
     Active Substance: AMLODIPINE BESYLATE
  7. KEFLEX [Concomitant]
     Active Substance: CEPHALEXIN
  8. DONEPEZIL. [Concomitant]
     Active Substance: DONEPEZIL
  9. IMBRUVICA [Suspect]
     Active Substance: IBRUTINIB
     Indication: CHRONIC LYMPHOCYTIC LEUKAEMIA
     Route: 048
     Dates: start: 20150501
  10. IMBRUVICA [Suspect]
     Active Substance: IBRUTINIB
     Indication: CHRONIC LYMPHOCYTIC LEUKAEMIA
     Route: 048
     Dates: start: 20161216
  11. LASIX [Concomitant]
     Active Substance: FUROSEMIDE
     Dates: end: 2016
  12. PREMARIN [Concomitant]
     Active Substance: ESTROGENS, CONJUGATED
  13. IMBRUVICA [Suspect]
     Active Substance: IBRUTINIB
     Indication: CHRONIC LYMPHOCYTIC LEUKAEMIA
     Route: 048
     Dates: start: 20150424
  14. PRADAXA [Suspect]
     Active Substance: DABIGATRAN ETEXILATE MESYLATE
     Indication: PRODUCT USED FOR UNKNOWN INDICATION
     Dosage: UNK
     Route: 065
     Dates: start: 20141015
  15. PRADAXA [Suspect]
     Active Substance: DABIGATRAN ETEXILATE MESYLATE
     Indication: PRODUCT USED FOR UNKNOWN INDICATION
     Route: 065
  16. ENALAPRIL [Concomitant]
     Active Substance: ENALAPRIL
  17. BISOPROLOL FUMARATE. [Concomitant]
     Active Substance: BISOPROLOL FUMARATE
  18. ZOLOFT [Concomitant]
     Active Substance: SERTRALINE HYDROCHLORIDE
  19. LANSOPRAZOLE. [Concomitant]
     Active Substance: LANSOPRAZOLE

REACTIONS (11)
  - Deafness [Unknown]
  - Atrial fibrillation [Unknown]
  - Fall [Unknown]
  - Ear pain [Unknown]
  - Dyspnoea [Unknown]
  - Haematotympanum [Recovered/Resolved]
  - Off label use [Unknown]
  - Presyncope [Unknown]
  - Contusion [Unknown]
  - Incorrect dose administered [Unknown]
  - Ear haemorrhage [Unknown]

NARRATIVE: CASE EVENT DATE: 20150424
